FAERS Safety Report 14036113 (Version 1)
Quarter: 2017Q4

REPORT INFORMATION
  Report Type: Spontaneous
  Country: US (occurrence: US)
  Receive Date: 20171003
  Receipt Date: 20171003
  Transmission Date: 20180321
  Serious: No
  Sender: FDA-Public Use
  Company Number: US-ROCHE-1978832

PATIENT
  Sex: Female
  Weight: 102.15 kg

DRUGS (2)
  1. RITUXAN HYCELA [Suspect]
     Active Substance: HYALURONIDASE (HUMAN RECOMBINANT)\RITUXIMAB
     Indication: LYMPHATIC DISORDER
  2. RITUXAN HYCELA [Suspect]
     Active Substance: HYALURONIDASE (HUMAN RECOMBINANT)\RITUXIMAB
     Indication: MARGINAL ZONE LYMPHOMA
     Dosage: NO
     Route: 058
     Dates: start: 20090222, end: 20090311

REACTIONS (4)
  - Pain in extremity [Recovered/Resolved]
  - Sensory disturbance [Not Recovered/Not Resolved]
  - Pain in extremity [Recovered/Resolved]
  - Gait inability [Unknown]
